FAERS Safety Report 5470077-3 (Version None)
Quarter: 2007Q3

REPORT INFORMATION
  Report Type: 
  Country: None (occurrence: None)
  Receive Date: 20070927
  Receipt Date: 20070917
  Transmission Date: 20080115
  Serious: Yes (Other)
  Sender: FDA-Public Use
  Company Number: SE-PFIZER INC-2007053416

PATIENT
  Sex: Female

DRUGS (4)
  1. CHAMPIX [Suspect]
     Indication: SMOKING CESSATION THERAPY
     Dates: start: 20070101, end: 20070401
  2. LEVOTHYROXINE SODIUM [Concomitant]
  3. URSODIOL [Concomitant]
     Indication: HEPATIC STEATOSIS
  4. KARVEA HCT [Concomitant]
     Indication: HYPERTENSION

REACTIONS (2)
  - ORAL FUNGAL INFECTION [None]
  - SJOGREN'S SYNDROME [None]
